FAERS Safety Report 8814586 (Version 1)
Quarter: 2012Q4

REPORT INFORMATION
  Report Type: Spontaneous
  Country: US (occurrence: None)
  Receive Date: 20120926
  Receipt Date: 20120926
  Transmission Date: 20130627
  Serious: Yes (Hospitalization)
  Sender: FDA-Public Use
  Company Number: DSA_58043_2012

PATIENT
  Sex: Female

DRUGS (5)
  1. XENAZINE [Suspect]
     Indication: HUNTINGTON^S DISEASE
     Route: 048
     Dates: start: 20120613
  2. COGENTIN [Concomitant]
  3. EFFEXOR [Concomitant]
  4. RISPERDAL [Concomitant]
  5. HALDOL /00027401/ [Concomitant]

REACTIONS (4)
  - Depression [None]
  - Apathy [None]
  - Somnolence [None]
  - Decubitus ulcer [None]
